FAERS Safety Report 6388266-2 (Version None)
Quarter: 2009Q4

REPORT INFORMATION
  Report Type: 
  Country: None (occurrence: None)
  Receive Date: 20091001
  Receipt Date: 20091001
  Transmission Date: 20100525
  Serious: Yes (Death)
  Sender: FDA-Public Use
  Company Number: None

PATIENT
  Sex: Female

DRUGS (10)
  1. REVLIMID [Suspect]
     Indication: MYELODYSPLASTIC SYNDROME
     Dosage: REVLIMID 10MG DAILY ORALLY
     Route: 048
  2. LISINOPRIL [Concomitant]
  3. LOVASTATIN [Concomitant]
  4. METOPROLOL SUCCINATE [Concomitant]
  5. NIFEDIPINE [Concomitant]
  6. NOVOLIN [Concomitant]
  7. LASIX [Concomitant]
  8. DILANTIN [Concomitant]
  9. ASPIRIN [Concomitant]
  10. BUTABITAL [Concomitant]

REACTIONS (3)
  - DISEASE PROGRESSION [None]
  - NO THERAPEUTIC RESPONSE [None]
  - PANCYTOPENIA [None]
